FAERS Safety Report 6701246-X (Version None)
Quarter: 2010Q2

REPORT INFORMATION
  Report Type: 
  Country: None (occurrence: None)
  Receive Date: 20100427
  Receipt Date: 20100412
  Transmission Date: 20101027
  Serious: Yes (Other)
  Sender: FDA-Public Use
  Company Number: AUR-APL-2010-01064

PATIENT
  Age: 23 Year
  Sex: Female
  Weight: 120 kg

DRUGS (4)
  1. CEPHALEXIN [Suspect]
     Indication: URINARY TRACT INFECTION
     Dosage: 500MG, ORAL
     Route: 048
     Dates: start: 20100315, end: 20100315
  2. AIROMIR [Concomitant]
  3. HYOSCINE 10MG DAILY [Concomitant]
  4. QVAR 40 [Concomitant]

REACTIONS (4)
  - CHEST PAIN [None]
  - DYSPNOEA [None]
  - PALPITATIONS [None]
  - URTICARIA [None]
